FAERS Safety Report 10516512 (Version 1)
Quarter: 2014Q4

REPORT INFORMATION
  Report Type: Spontaneous
  Country: US (occurrence: None)
  Receive Date: 20141002
  Receipt Date: 20141002
  Transmission Date: 20150528
  Serious: Yes (Other)
  Sender: FDA-Public Use
  Company Number: 1422709

PATIENT
  Age: 58 Year
  Sex: Male

DRUGS (6)
  1. METFORMIN [Concomitant]
     Active Substance: METFORMIN HYDROCHLORIDE
  2. PEGINTERFERON ALFA-2A [Suspect]
     Active Substance: PEGINTERFERON ALFA-2A
     Indication: HEPATITIS C
     Dosage: 1 IN 1 WK
     Route: 058
     Dates: start: 20140324, end: 20140616
  3. SOVALDI [Suspect]
     Active Substance: SOFOSBUVIR
     Indication: HEPATITIS C
     Dosage: 1 IN 1 D
     Route: 048
     Dates: start: 20140324, end: 20140616
  4. WARFARIN [Concomitant]
     Active Substance: WARFARIN
  5. RIBAVIRIN. [Suspect]
     Active Substance: RIBAVIRIN
     Indication: HEPATITIS C
     Dosage: 1 IN 1 D
     Route: 048
     Dates: start: 20140324
  6. LOVENOX [Concomitant]
     Active Substance: ENOXAPARIN SODIUM

REACTIONS (4)
  - Fatigue [None]
  - Atrial fibrillation [None]
  - Rash [None]
  - Anaemia [None]

NARRATIVE: CASE EVENT DATE: 20140407
